FAERS Safety Report 17684845 (Version 2)
Quarter: 2020Q2

REPORT INFORMATION
  Report Type: Spontaneous
  Country: UY (occurrence: UY)
  Receive Date: 20200420
  Receipt Date: 20200507
  Transmission Date: 20200714
  Serious: Yes (Death, Other)
  Sender: FDA-Public Use
  Company Number: UY-ROCHE-2584714

PATIENT
  Age: 85 Year
  Sex: Male

DRUGS (1)
  1. ACTEMRA [Suspect]
     Active Substance: TOCILIZUMAB
     Indication: COVID-19
     Dosage: UNKNOWN DOSE
     Route: 065
     Dates: start: 20200406, end: 20200407

REACTIONS (3)
  - Intentional product use issue [Unknown]
  - Cardio-respiratory distress [Fatal]
  - Off label use [Unknown]

NARRATIVE: CASE EVENT DATE: 20200407
